FAERS Safety Report 6270787-4 (Version None)
Quarter: 2009Q3

REPORT INFORMATION
  Report Type: 
  Country: None (occurrence: None)
  Receive Date: 20090716
  Receipt Date: 20090713
  Transmission Date: 20100115
  Serious: Yes (Other)
  Sender: FDA-Public Use
  Company Number: US-JNJCH-2009019072

PATIENT
  Age: 90 Year
  Sex: Male
  Weight: 74.8 kg

DRUGS (2)
  1. BENGAY ULTRA STRENGTH [Suspect]
     Indication: MYALGIA
     Dosage: TEXT:ABOUT 1/2IN. TO A 1/4IN. ONCE IN EVENING
     Route: 061
     Dates: start: 20090711, end: 20090711
  2. MULTI-VITAMINS [Concomitant]
     Indication: VITAMIN SUPPLEMENTATION
     Dosage: TEXT:ONE BEFORE EACH MEAL
     Route: 048

REACTIONS (1)
  - MOVEMENT DISORDER [None]
